FAERS Safety Report 21903393 (Version 1)
Quarter: 2023Q1

REPORT INFORMATION
  Report Type: Spontaneous
  Country: US (occurrence: US)
  Receive Date: 20230124
  Receipt Date: 20230124
  Transmission Date: 20230418
  Serious: Yes (Death, Hospitalization, Other)
  Sender: FDA-Public Use
  Company Number: US-PFIZER INC-202300028209

PATIENT
  Age: 69 Year
  Sex: Female

DRUGS (4)
  1. COMIRNATY [Interacting]
     Active Substance: TOZINAMERAN
     Indication: COVID-19 immunisation
     Dosage: DOSE 2, SINGLE
  2. METHOTREXATE SODIUM [Interacting]
     Active Substance: METHOTREXATE SODIUM
  3. TOFACITINIB CITRATE [Interacting]
     Active Substance: TOFACITINIB CITRATE
  4. LEUCOVORIN [Interacting]
     Active Substance: LEUCOVORIN

REACTIONS (4)
  - Drug interaction [Fatal]
  - COVID-19 pneumonia [Fatal]
  - Septic shock [Fatal]
  - Respiratory failure [Recovered/Resolved]
